FAERS Safety Report 7469621-6 (Version None)
Quarter: 2011Q2

REPORT INFORMATION
  Report Type: 
  Country: None (occurrence: None)
  Receive Date: 20110510
  Receipt Date: 20110422
  Transmission Date: 20111010
  Serious: Yes (Other)
  Sender: FDA-Public Use
  Company Number: NL-BAXTER-2011BH012901

PATIENT
  Age: 55 Year
  Sex: Female

DRUGS (6)
  1. GAMMAGARD S/D [Suspect]
     Indication: MULTIPLE SCLEROSIS
     Route: 042
     Dates: start: 20110318
  2. GAMMAGARD S/D [Suspect]
     Indication: OFF LABEL USE
     Route: 042
     Dates: start: 20110318
  3. GAMMAGARD S/D [Suspect]
     Route: 042
     Dates: start: 20110318
  4. GAMMAGARD S/D [Suspect]
     Route: 042
     Dates: start: 20110318
  5. GAMMAGARD S/D [Suspect]
     Route: 042
     Dates: start: 20080309
  6. GAMMAGARD S/D [Suspect]
     Route: 042
     Dates: start: 20080309

REACTIONS (2)
  - EYE PAIN [None]
  - IRITIS [None]
